FAERS Safety Report 18342356 (Version 2)
Quarter: 2020Q4

REPORT INFORMATION
  Report Type: Spontaneous
  Country: NL (occurrence: NL)
  Receive Date: 20201005
  Receipt Date: 20201027
  Transmission Date: 20210113
  Serious: Yes (Life-Threatening, Hospitalization, Other)
  Sender: FDA-Public Use
  Company Number: NL-AMGEN-NLDSP2020160052

PATIENT
  Sex: Female

DRUGS (7)
  1. PACLITAXEL. [Concomitant]
     Active Substance: PACLITAXEL
     Indication: OVARIAN EPITHELIAL CANCER STAGE IV
  2. TOPOTECAN [Concomitant]
     Active Substance: TOPOTECAN HYDROCHLORIDE
     Indication: OVARIAN EPITHELIAL CANCER STAGE IV
  3. TOPOTECAN [Concomitant]
     Active Substance: TOPOTECAN HYDROCHLORIDE
     Indication: OVARIAN EPITHELIAL CANCER STAGE III
     Dosage: 0.3 MILLIGRAM/SQ. METER, Q3WK (OVER 30 MINUTES FOR 5 CONSECUTIVE DAYS (DAYS 2 TO 6)
     Route: 042
  4. NEUPOGEN [Suspect]
     Active Substance: FILGRASTIM
     Indication: PRODUCT USED FOR UNKNOWN INDICATION
     Dosage: 5 MILLIGRAM/KILOGRAM, QD
     Route: 058
  5. CISPLATIN. [Concomitant]
     Active Substance: CISPLATIN
     Indication: OVARIAN EPITHELIAL CANCER STAGE III
     Dosage: 50 MILLIGRAM/SQ. METER, Q3WK (OVER 3 HOURS DAY2)
     Route: 042
  6. CISPLATIN. [Concomitant]
     Active Substance: CISPLATIN
     Indication: OVARIAN EPITHELIAL CANCER STAGE IV
  7. PACLITAXEL. [Concomitant]
     Active Substance: PACLITAXEL
     Indication: OVARIAN EPITHELIAL CANCER STAGE III
     Dosage: 110 MILLIGRAM/SQ. METER, Q3WK (OVER 24 HOURS DAY 1)
     Route: 042

REACTIONS (7)
  - Epistaxis [Unknown]
  - Dehydration [Unknown]
  - Nephropathy toxic [Unknown]
  - Platelet transfusion [Unknown]
  - Febrile neutropenia [Unknown]
  - Thrombocytopenia [Unknown]
  - Anaemia [Unknown]
